FAERS Safety Report 23611141 (Version 1)
Quarter: 2024Q1

REPORT INFORMATION
  Report Type: Spontaneous
  Country: JP (occurrence: JP)
  Receive Date: 20240308
  Receipt Date: 20240308
  Transmission Date: 20240409
  Serious: Yes (Other)
  Sender: FDA-Public Use
  Company Number: JP-VA000000605-2024001592

PATIENT

DRUGS (1)
  1. PASIREOTIDE [Suspect]
     Active Substance: PASIREOTIDE
     Indication: Pituitary-dependent Cushing^s syndrome
     Dosage: (STARTED IN APRIL)

REACTIONS (1)
  - Pituitary cancer metastatic [Unknown]
